FAERS Safety Report 5472605-0 (Version None)
Quarter: 2007Q4

REPORT INFORMATION
  Report Type: 
  Country: None (occurrence: None)
  Receive Date: 20071001
  Receipt Date: 20061031
  Transmission Date: 20080405
  Serious: No
  Sender: FDA-Public Use
  Company Number: US-ASTRAZENECA-2004UW15419

PATIENT
  Age: 80 Year
  Sex: Female
  Weight: 65.9 kg

DRUGS (6)
  1. ARIMIDEX [Suspect]
     Indication: BREAST CANCER
     Route: 048
     Dates: start: 20030901
  2. SYNTHROID [Concomitant]
  3. DOXEPIN HCL [Concomitant]
  4. KLONOPIN [Concomitant]
  5. LISINOPRIL [Concomitant]
  6. MULTI-VITAMIN [Concomitant]

REACTIONS (2)
  - ENDOMETRIAL HYPERTROPHY [None]
  - NAIL DISORDER [None]
